FAERS Safety Report 16460253 (Version 1)
Quarter: 2019Q2

REPORT INFORMATION
  Report Type: Spontaneous
  Country: JP (occurrence: JP)
  Receive Date: 20190620
  Receipt Date: 20190620
  Transmission Date: 20190711
  Serious: Yes (Life-Threatening, Hospitalization, Other)
  Sender: FDA-Public Use
  Company Number: JP-PFIZER INC-2019237293

PATIENT
  Age: 78 Year
  Sex: Male
  Weight: 43.6 kg

DRUGS (2)
  1. CEFTRIAXONE SODIUM. [Suspect]
     Active Substance: CEFTRIAXONE SODIUM
     Indication: URINARY TRACT INFECTION
     Dosage: 1 G, BID
     Route: 042
     Dates: start: 20190507, end: 20190527
  2. ANCARON [Suspect]
     Active Substance: AMIODARONE HYDROCHLORIDE
     Indication: VENTRICULAR ARRHYTHMIA
     Dosage: 100 MG, QD
     Route: 048
     Dates: start: 20190523, end: 20190527

REACTIONS (3)
  - Febrile neutropenia [Recovered/Resolved]
  - Pancytopenia [Recovering/Resolving]
  - Granulocytes maturation arrest [Recovering/Resolving]

NARRATIVE: CASE EVENT DATE: 20190527
